FAERS Safety Report 7113399-2 (Version None)
Quarter: 2010Q4

REPORT INFORMATION
  Report Type: 
  Country: None (occurrence: None)
  Receive Date: 20101119
  Receipt Date: 20101111
  Transmission Date: 20110411
  Serious: Yes (Death, Other)
  Sender: FDA-Public Use
  Company Number: PHHY2010JP77362

PATIENT
  Sex: Female

DRUGS (3)
  1. EXJADE [Suspect]
     Indication: IRON OVERLOAD
     Dosage: 500 MG DAILY
     Route: 048
     Dates: start: 20100223, end: 20100904
  2. ZYLORIC [Concomitant]
     Dosage: 100 MG
     Route: 048
     Dates: start: 20100223, end: 20100604
  3. LASIX [Concomitant]
     Indication: MYELOFIBROSIS
     Dosage: 40 MG
     Route: 048
     Dates: start: 20100604, end: 20100902

REACTIONS (3)
  - ASCITES [None]
  - INTRA-ABDOMINAL HAEMORRHAGE [None]
  - PARACENTESIS [None]
